FAERS Safety Report 7745608-0 (Version None)
Quarter: 2011Q3

REPORT INFORMATION
  Report Type: 
  Country: None (occurrence: None)
  Receive Date: 20110913
  Receipt Date: 20110830
  Transmission Date: 20111222
  Serious: Yes (Other)
  Sender: FDA-Public Use
  Company Number: US-ELI_LILLY_AND_COMPANY-US201104002734

PATIENT
  Age: 60 Year
  Sex: Female

DRUGS (1)
  1. FORTEO [Suspect]
     Indication: OSTEOPOROSIS
     Dosage: 20 UG, QD
     Route: 065
     Dates: start: 20110325

REACTIONS (6)
  - MEDICAL DEVICE COMPLICATION [None]
  - IMPAIRED HEALING [None]
  - SOFT TISSUE INFECTION [None]
  - MUSCLE SPASMS [None]
  - OSTEOMYELITIS [None]
  - BONE GRAFT [None]
